FAERS Safety Report 5262163-8 (Version None)
Quarter: 2007Q1

REPORT INFORMATION
  Report Type: 
  Country: None (occurrence: None)
  Receive Date: 20070308
  Receipt Date: 20070221
  Transmission Date: 20070707
  Serious: Yes (Death, Hospitalization)
  Sender: FDA-Public Use
  Company Number: MEDI-0005346

PATIENT
  Age: 16 Month
  Sex: Male
  Weight: 7.4 kg

DRUGS (7)
  1. SYNAGIS [Suspect]
     Indication: RESPIRATORY SYNCYTIAL VIRUS INFECTION
     Dosage: SEE IMAGE
     Route: 030
     Dates: start: 20060927, end: 20061222
  2. SYNAGIS [Suspect]
     Indication: RESPIRATORY SYNCYTIAL VIRUS INFECTION
     Dosage: SEE IMAGE
     Route: 030
     Dates: start: 20060927
  3. SYNAGIS [Suspect]
     Indication: RESPIRATORY SYNCYTIAL VIRUS INFECTION
     Dosage: SEE IMAGE
     Route: 030
     Dates: start: 20061025
  4. SYNAGIS [Suspect]
     Indication: RESPIRATORY SYNCYTIAL VIRUS INFECTION
     Dosage: SEE IMAGE
     Route: 030
     Dates: start: 20061122
  5. THEOPHYLLINE [Concomitant]
  6. FLUTICASONE PROPIONATE [Concomitant]
  7. TULOBUTEROL (TULOBUTEROL) [Concomitant]

REACTIONS (4)
  - DRUG INEFFECTIVE [None]
  - PLATELET COUNT INCREASED [None]
  - PSEUDOMONAS INFECTION [None]
  - RESPIRATORY FAILURE [None]
